FAERS Safety Report 12434681 (Version 2)
Quarter: 2016Q3

REPORT INFORMATION
  Report Type: Spontaneous
  Country: CA (occurrence: CA)
  Receive Date: 20160603
  Receipt Date: 20160914
  Transmission Date: 20161109
  Serious: Yes (Other)
  Sender: FDA-Public Use
  Company Number: CA-ABBVIE-16P-028-1644334-00

PATIENT
  Sex: Female

DRUGS (2)
  1. NIASPAN [Suspect]
     Active Substance: NIACIN
     Dosage: NIASPAN FCT, 2000 MILLIGRAM
     Route: 065
  2. NIASPAN [Suspect]
     Active Substance: NIACIN
     Indication: BLOOD CHOLESTEROL ABNORMAL
     Route: 065

REACTIONS (1)
  - Hypoaesthesia [Not Recovered/Not Resolved]
